FAERS Safety Report 14143542 (Version 5)
Quarter: 2018Q3

REPORT INFORMATION
  Report Type: Report from Study
  Country: None (occurrence: US)
  Receive Date: 20171030
  Receipt Date: 20180926
  Transmission Date: 20181010
  Serious: Yes (Other)
  Sender: FDA-Public Use
  Company Number: US-ABBVIE-17K-163-2095848-00

PATIENT
  Age: 67 Year
  Sex: Female

DRUGS (2)
  1. HUMIRA [Suspect]
     Active Substance: ADALIMUMAB
     Indication: ANKYLOSING SPONDYLITIS
     Route: 058
     Dates: start: 2017
  2. HUMIRA [Suspect]
     Active Substance: ADALIMUMAB
     Indication: PSORIATIC ARTHROPATHY
     Route: 058
     Dates: end: 2017

REACTIONS (22)
  - Spondylitis [Recovered/Resolved]
  - Muscular weakness [Unknown]
  - Hypoaesthesia [Not Recovered/Not Resolved]
  - Musculoskeletal disorder [Unknown]
  - Spinal operation [Recovered/Resolved]
  - Stress [Unknown]
  - Dry mouth [Unknown]
  - Cartilage atrophy [Recovered/Resolved]
  - Arthritis [Not Recovered/Not Resolved]
  - Frustration tolerance decreased [Unknown]
  - Foot deformity [Not Recovered/Not Resolved]
  - Knee arthroplasty [Not Recovered/Not Resolved]
  - Arthrodesis [Not Recovered/Not Resolved]
  - Restless legs syndrome [Recovering/Resolving]
  - Drug ineffective [Not Recovered/Not Resolved]
  - Pain in extremity [Not Recovered/Not Resolved]
  - Arthralgia [Recovered/Resolved]
  - Intervertebral disc protrusion [Not Recovered/Not Resolved]
  - Pain [Unknown]
  - Dry eye [Unknown]
  - Back pain [Not Recovered/Not Resolved]
  - Psoriasis [Unknown]

NARRATIVE: CASE EVENT DATE: 201701
